FAERS Safety Report 8318692-3 (Version None)
Quarter: 2012Q1

REPORT INFORMATION
  Report Type: 
  Country: None (occurrence: None)
  Receive Date: 20120315
  Receipt Date: 20110304
  Transmission Date: 20120608
  Serious: Yes (Other)
  Sender: FDA-Public Use
  Company Number: PHHY2011US02869

PATIENT
  Age: 48 Year
  Sex: Female

DRUGS (18)
  1. CYMBALTA [Concomitant]
  2. GILENYA [Suspect]
     Indication: MULTIPLE SCLEROSIS
     Dosage: 0.5 MG, QD, ORAL
     Route: 048
     Dates: start: 20110105
  3. LIOTHYROXINE (LIOTHYROXINE) [Concomitant]
  4. CELEBREX [Concomitant]
  5. AMBIEN [Concomitant]
  6. TIZANIDINE HCL [Concomitant]
  7. MAGNESIUM OXIDE (MAGNESIUM OXIDE) [Concomitant]
  8. ZOLPIDEM [Concomitant]
  9. LEVOTHYROXINE SODIUM [Concomitant]
  10. VITAMIN D [Concomitant]
  11. ASPIRIN [Concomitant]
  12. VITAMIN D [Concomitant]
  13. SPIRONOLACTONE [Concomitant]
  14. VITAMIN B12 [Concomitant]
  15. NEURONTIN [Concomitant]
  16. LEVOTHROID [Concomitant]
  17. TYSABRI [Concomitant]
  18. ZYPREXA [Concomitant]

REACTIONS (1)
  - HYPERTENSION [None]
